FAERS Safety Report 8983766 (Version 1)
Quarter: 2012Q4

REPORT INFORMATION
  Report Type: 
  Country: JP (occurrence: JP)
  Receive Date: 20121224
  Receipt Date: 20121224
  Transmission Date: 20130627
  Serious: Yes (Hospitalization)
  Sender: FDA-Public Use
  Company Number: JP-ROCHE-1168649

PATIENT
  Age: 81 Year
  Sex: Male
  Weight: 65 kg

DRUGS (10)
  1. AVASTIN [Suspect]
     Indication: RECTAL CANCER
     Route: 041
     Dates: start: 20120911, end: 20121029
  2. IRINOTECAN HYDROCHLORIDE [Suspect]
     Indication: RECTAL CANCER
     Route: 041
     Dates: start: 20120911, end: 20121001
  3. MUCODYNE [Concomitant]
     Dosage: Dosage is uncertain.
     Route: 048
  4. PARIET [Concomitant]
     Dosage: Dosage is uncertain.
     Route: 048
  5. MAGMITT [Concomitant]
     Dosage: Dosage is uncertain.
     Route: 048
  6. NILVADIPINE [Concomitant]
     Dosage: Dosage is uncertain.
     Route: 048
  7. FERO-GRADUMET [Concomitant]
     Dosage: Dosage is uncertain.
     Route: 048
  8. MOHRUS TAPE L [Concomitant]
     Route: 062
  9. SPIRIVA [Concomitant]
     Dosage: Dosage is uncertain.
     Route: 055
  10. ADOAIR [Concomitant]
     Dosage: Dosage is uncertain.
     Route: 055

REACTIONS (2)
  - Interstitial lung disease [Recovering/Resolving]
  - Pneumocystis jiroveci pneumonia [Unknown]
